FAERS Safety Report 6155928-1 (Version None)
Quarter: 2009Q2

REPORT INFORMATION
  Report Type: 
  Country: None (occurrence: None)
  Receive Date: 20090415
  Receipt Date: 20090403
  Transmission Date: 20091009
  Serious: Yes (Other)
  Sender: FDA-Public Use
  Company Number: GR-ROCHE-626174

PATIENT
  Age: 71 Year
  Sex: Female

DRUGS (3)
  1. BONIVA [Suspect]
     Indication: OSTEOPOROSIS
     Route: 048
     Dates: start: 20070101
  2. CHEMOTHERAPY NOS [Concomitant]
     Indication: NON-HODGKIN'S LYMPHOMA
  3. ANTI-INFLAMMATORY MEDICATIONS NOS [Concomitant]
     Indication: BONE PAIN

REACTIONS (2)
  - BONE PAIN [None]
  - LEUKOPENIA [None]
